FAERS Safety Report 7082650-X (Version None)
Quarter: 2010Q4

REPORT INFORMATION
  Report Type: 
  Country: None (occurrence: None)
  Receive Date: 20101026
  Receipt Date: 20101008
  Transmission Date: 20110411
  Serious: Yes (Hospitalization)
  Sender: FDA-Public Use
  Company Number: 20090344

PATIENT
  Age: 23 Year
  Sex: Female
  Weight: 60 kg

DRUGS (18)
  1. VENOFER [Suspect]
     Indication: ANAEMIA
     Dosage: 200 MG INTRAVENOUS
     Route: 042
     Dates: start: 20090715, end: 20090715
  2. PERFALGAN(PARACETAMOL) [Suspect]
     Dates: start: 20090715, end: 20090718
  3. KETOPROFEN [Suspect]
     Dosage: INTRAVENOUS
     Route: 042
     Dates: start: 20090715, end: 20090718
  4. VENOFER [Suspect]
     Indication: ANAEMIA
     Dosage: 300 MG INTRAVENOUS
     Route: 042
     Dates: start: 20090717, end: 20090717
  5. MORPHINE [Suspect]
     Dosage: INFUSION
     Dates: start: 20090715, end: 20090718
  6. CEFOXITINE(CEFOXITINE) [Concomitant]
  7. CELOCURINE(SUXAMETHONIUM) [Concomitant]
  8. CLAMOXYL (AMOXOCILLIN) [Concomitant]
  9. DIPRIVAN [Concomitant]
  10. GLUCIDION(SODIUM CHLORIDE, POTASSIUM CHLORIDE, GLUCOSE) [Concomitant]
  11. LOVENOX [Concomitant]
  12. RUDIVAX (UBELLA STRAIN WISTAR RA 27/3) [Concomitant]
  13. SUFENTA(SUFENTANIL) [Concomitant]
  14. SYNTOCINON [Concomitant]
  15. TAGMET(CIMETIDINE) [Concomitant]
  16. TRACRIUM [Concomitant]
  17. RINGERS OLTUION (SODIUM CHLORIDE, POTASSIUM CHLORIDE,CALCIUM CHLORIDE, [Concomitant]
  18. ANTISPASMODIC DRUGS [Concomitant]

REACTIONS (4)
  - ARTHRALGIA [None]
  - DYSPNOEA [None]
  - PULMONARY EMBOLISM [None]
  - THROMBOPHLEBITIS SUPERFICIAL [None]
